FAERS Safety Report 10024862 (Version 2)
Quarter: 2014Q1

REPORT INFORMATION
  Report Type: Spontaneous
  Country: US (occurrence: None)
  Receive Date: 20140318
  Receipt Date: 20140325
  Transmission Date: 20141002
  Serious: Yes (Hospitalization, Other)
  Sender: FDA-Public Use
  Company Number: 2014P1001972

PATIENT
  Age: 37 Year
  Sex: Female
  Weight: 90.72 kg

DRUGS (3)
  1. DIPHENHYDRAMINE HCL [Suspect]
     Indication: PRURITUS
     Dosage: 50MG/ML VIAL
     Dates: start: 2009
  2. DILAUDID [Concomitant]
  3. METHADONE [Concomitant]

REACTIONS (7)
  - Sickle cell anaemia [None]
  - Pruritus [None]
  - Injection site nodule [None]
  - Injection site pain [None]
  - Injection site swelling [None]
  - Condition aggravated [None]
  - Injection site urticaria [None]
